FAERS Safety Report 18802590 (Version 1)
Quarter: 2021Q1

REPORT INFORMATION
  Report Type: Report from Study
  Country: None (occurrence: CO)
  Receive Date: 20210129
  Receipt Date: 20210129
  Transmission Date: 20210419
  Serious: Yes (Death)
  Sender: FDA-Public Use
  Company Number: CO-ABBVIE-21K-036-3751049-00

PATIENT
  Sex: Female
  Weight: 56 kg

DRUGS (1)
  1. IMBRUVICA [Suspect]
     Active Substance: IBRUTINIB
     Indication: CHRONIC LYMPHOCYTIC LEUKAEMIA
     Route: 048
     Dates: start: 20200416, end: 20210105

REACTIONS (7)
  - Vomiting [Not Recovered/Not Resolved]
  - Off label use [Unknown]
  - Influenza [Not Recovered/Not Resolved]
  - Incorrect dose administered [Unknown]
  - Respiratory failure [Fatal]
  - Cough [Not Recovered/Not Resolved]
  - Back pain [Not Recovered/Not Resolved]
